FAERS Safety Report 6213788-4 (Version None)
Quarter: 2009Q2

REPORT INFORMATION
  Report Type: 
  Country: None (occurrence: None)
  Receive Date: 20090602
  Receipt Date: 20090518
  Transmission Date: 20091009
  Serious: Yes (Other)
  Sender: FDA-Public Use
  Company Number: 2009001523

PATIENT
  Age: 58 Year
  Sex: Male
  Weight: 65.3 kg

DRUGS (14)
  1. ERLOTINIB (ERLOTINIB) (TABLET) (ERLOTINIB) [Suspect]
     Indication: OESOPHAGEAL CARCINOMA
     Dosage: (100 MG), ORAL
     Route: 048
     Dates: start: 20090413
  2. BEVACIZUMAB (INJECTION FOR INFUSION) [Suspect]
     Indication: OESOPHAGEAL CARCINOMA
     Dosage: (15 MG/KG), INTRAVENOUS
     Route: 042
     Dates: start: 20090413
  3. CARBOPLATIN [Concomitant]
  4. PACLITAXEL [Concomitant]
  5. FLUOROURACIL [Concomitant]
  6. ALLOPURINOL [Concomitant]
  7. ATENOLOL [Concomitant]
  8. BENAZEPRIL HYDROCHLORIDE [Concomitant]
  9. HYDROCODONE (HYDROCODONE) [Concomitant]
  10. LORAZEPAM [Concomitant]
  11. MS CONTIN [Concomitant]
  12. OMEPRAZOLE [Concomitant]
  13. PROMETHAZINE [Concomitant]
  14. VALTREX [Concomitant]

REACTIONS (5)
  - ACTIVATED PARTIAL THROMBOPLASTIN TIME PROLONGED [None]
  - INTERNATIONAL NORMALISED RATIO DECREASED [None]
  - PERIPHERAL ISCHAEMIA [None]
  - PLATELET COUNT DECREASED [None]
  - PROTHROMBIN TIME PROLONGED [None]
